FAERS Safety Report 16242648 (Version 1)
Quarter: 2019Q2

REPORT INFORMATION
  Report Type: Spontaneous
  Country: US (occurrence: US)
  Receive Date: 20190321
  Receipt Date: 20190321
  Transmission Date: 20190711
  Serious: Yes (Hospitalization)
  Sender: FDA-Public Use
  Company Number: None

PATIENT
  Age: 79 Year
  Sex: Female
  Weight: 68.1 kg

DRUGS (2)
  1. PACLITAXEL. [Suspect]
     Active Substance: PACLITAXEL
     Dates: end: 20190129
  2. CARBOPLATIN. [Suspect]
     Active Substance: CARBOPLATIN
     Dosage: ?          OTHER DOSE:448.2MG;?
     Dates: end: 20190129

REACTIONS (6)
  - Vomiting [None]
  - Dehydration [None]
  - Gastroenteritis viral [None]
  - Abdominal pain [None]
  - Gastritis [None]
  - Delirium [None]

NARRATIVE: CASE EVENT DATE: 20190205
